FAERS Safety Report 21527717 (Version 2)
Quarter: 2022Q4

REPORT INFORMATION
  Report Type: Spontaneous
  Country: US (occurrence: US)
  Receive Date: 20221031
  Receipt Date: 20221031
  Transmission Date: 20230112
  Serious: No
  Sender: FDA-Public Use
  Company Number: US-RECKITT BENCKISER HEALTHCARE INT LIMITED-RB-081426-2022

PATIENT
  Age: 82 Year
  Sex: Female

DRUGS (4)
  1. MUCINEX [Suspect]
     Active Substance: GUAIFENESIN
     Indication: Rhinorrhoea
     Dosage: 1 DOSAGE FORM, BID
     Route: 048
     Dates: start: 20220103
  2. MUCINEX [Suspect]
     Active Substance: GUAIFENESIN
     Indication: Headache
  3. MUCINEX [Suspect]
     Active Substance: GUAIFENESIN
     Indication: Cough
  4. MUCINEX [Suspect]
     Active Substance: GUAIFENESIN
     Indication: Nasopharyngitis

REACTIONS (4)
  - Product use in unapproved indication [Not Recovered/Not Resolved]
  - Incorrect product administration duration [Not Recovered/Not Resolved]
  - Drug ineffective [Not Recovered/Not Resolved]
  - Diarrhoea [Not Recovered/Not Resolved]
